FAERS Safety Report 4936255-4 (Version None)
Quarter: 2006Q1

REPORT INFORMATION
  Report Type: 
  Country: None (occurrence: None)
  Receive Date: 20060127
  Receipt Date: 20051121
  Transmission Date: 20060701
  Serious: Yes (Other)
  Sender: FDA-Public Use
  Company Number: 2005160599

PATIENT
  Age: 65 Year
  Sex: Female
  Weight: 71.6683 kg

DRUGS (6)
  1. LYRICA [Suspect]
     Indication: CONVULSION
     Dosage: 100 MG (50 MG, 2 IN 1 D), ORAL
     Route: 048
     Dates: start: 20051107
  2. LISINOPRIL [Concomitant]
  3. FUROSEMIDE [Concomitant]
  4. KLOR-CON [Concomitant]
  5. FOSAMAX [Concomitant]
  6. PRIMIDONE [Concomitant]

REACTIONS (3)
  - HEADACHE [None]
  - INSOMNIA [None]
  - SWELLING FACE [None]
